FAERS Safety Report 25974405 (Version 1)
Quarter: 2025Q4

REPORT INFORMATION
  Report Type: Spontaneous
  Country: EU (occurrence: EU)
  Receive Date: 20251029
  Receipt Date: 20251029
  Transmission Date: 20260118
  Serious: Yes (Other)
  Sender: BRACCO
  Company Number: None

PATIENT
  Age: 72 Year
  Sex: Male

DRUGS (1)
  1. IOMERON [Suspect]
     Active Substance: IOMEPROL
     Indication: Computerised tomogram
     Dosage: 100 ML, SINGLE
     Route: 042
     Dates: start: 20220201, end: 20220201

REACTIONS (6)
  - Infusion site extravasation [Recovering/Resolving]
  - Pain in extremity [Recovering/Resolving]
  - Malaise [Recovering/Resolving]
  - Asthenia [Recovering/Resolving]
  - Heart rate abnormal [Recovering/Resolving]
  - Blood pressure abnormal [Recovering/Resolving]

NARRATIVE: CASE EVENT DATE: 20220201
